FAERS Safety Report 20331826 (Version 2)
Quarter: 2022Q1

REPORT INFORMATION
  Report Type: Other
  Country: US (occurrence: None)
  Receive Date: 20220113
  Receipt Date: 20220119
  Transmission Date: 20220423
  Serious: Yes (Other)
  Sender: FDA-Public Use
  Company Number: US-ROCHE-2999294

PATIENT
  Sex: Female
  Weight: 67.737 kg

DRUGS (4)
  1. OCREVUS [Suspect]
     Active Substance: OCRELIZUMAB
     Indication: Relapsing multiple sclerosis
     Dosage: 300 MG
     Route: 042
  2. AMLODIPINE [Concomitant]
     Active Substance: AMLODIPINE BESYLATE
  3. ALPRAZOLAM [Concomitant]
     Active Substance: ALPRAZOLAM
  4. CITALOPRAM HYDROBROMIDE [Concomitant]
     Active Substance: CITALOPRAM HYDROBROMIDE

REACTIONS (21)
  - Dry eye [Unknown]
  - Blood pressure increased [Unknown]
  - Chest pain [Unknown]
  - Fatigue [Unknown]
  - Facial asymmetry [Unknown]
  - Back pain [Unknown]
  - COVID-19 [Unknown]
  - Rheumatic disorder [Unknown]
  - Alopecia [Unknown]
  - Mouth ulceration [Unknown]
  - Vitreous floaters [Unknown]
  - General physical health deterioration [Unknown]
  - Memory impairment [Unknown]
  - Pneumonia [Unknown]
  - Visual acuity reduced [Unknown]
  - Pain in extremity [Unknown]
  - Pain [Unknown]
  - Weight increased [Unknown]
  - Polyarthritis [Unknown]
  - Hypoaesthesia [Unknown]
  - Sleep apnoea syndrome [Unknown]
